FAERS Safety Report 5424206-8 (Version None)
Quarter: 2007Q3

REPORT INFORMATION
  Report Type: 
  Country: None (occurrence: None)
  Receive Date: 20070823
  Receipt Date: 20070813
  Transmission Date: 20080115
  Serious: Yes (Other)
  Sender: FDA-Public Use
  Company Number: BR-PFIZER INC-2007067463

PATIENT
  Sex: Female
  Weight: 75 kg

DRUGS (2)
  1. DEPO-PROVERA SUSPENSION/INJ [Suspect]
     Indication: CONTRACEPTION
     Dates: start: 19991101, end: 19991101
  2. DEPO-PROVERA SUSPENSION/INJ [Suspect]
     Dates: start: 20070807, end: 20070808

REACTIONS (3)
  - AMENORRHOEA [None]
  - HEADACHE [None]
  - LABYRINTHITIS [None]
